FAERS Safety Report 8254430-0 (Version None)
Quarter: 2012Q2

REPORT INFORMATION
  Report Type: 
  Country: None (occurrence: None)
  Receive Date: 20120403
  Receipt Date: 20120321
  Transmission Date: 20120825
  Serious: Yes (Other)
  Sender: FDA-Public Use
  Company Number: BR-AMGEN-BRASP2012019445

PATIENT
  Age: 37 Year
  Sex: Female
  Weight: 73 kg

DRUGS (13)
  1. PREDNISONE TAB [Concomitant]
     Dosage: 20 MG, UNK
  2. LOSARTAN POTASSIUM [Concomitant]
     Dosage: 50 MG, UNK
  3. AMITRIPTYLINE HCL [Concomitant]
     Dosage: 20 MG, UNK
  4. LEVOTHYROXINE SODIUM [Concomitant]
     Dosage: 100 MG, UNK
  5. ENBREL [Suspect]
     Indication: RHEUMATOID ARTHRITIS
     Dosage: 50 MG, ONCE WEEKLY
     Route: 058
     Dates: start: 20100401, end: 20111101
  6. ARAVA [Concomitant]
     Dosage: 20 MG, UNK
  7. TRAMADOL HYDROCHLORIDE [Concomitant]
     Dosage: 50 MG, UNK
  8. ENBREL [Suspect]
     Dosage: UNK
     Route: 058
     Dates: start: 20120301
  9. ALENDRONATE SODIUM [Concomitant]
     Dosage: 70 MG, UNK
  10. HYDROCHLOROTHIAZIDE [Concomitant]
     Dosage: 25 MG, UNK
  11. NIMESULIDE [Concomitant]
     Dosage: 100 MG, UNK
  12. ATENOLOL [Concomitant]
     Dosage: 25 MG, UNK
  13. VITAMIN D [Concomitant]

REACTIONS (5)
  - FOOT DEFORMITY [None]
  - ARTHRALGIA [None]
  - OSTEOPOROSIS [None]
  - INJECTION SITE PAIN [None]
  - TOOTH DISORDER [None]
